FAERS Safety Report 18641931 (Version 1)
Quarter: 2020Q4

REPORT INFORMATION
  Report Type: Spontaneous
  Country: US (occurrence: US)
  Receive Date: 20201220
  Receipt Date: 20201220
  Transmission Date: 20210114
  Serious: No
  Sender: FDA-Public Use
  Company Number: None

PATIENT
  Age: 58 Year
  Sex: Female
  Weight: 90 kg

DRUGS (1)
  1. BAMLANIVIMAB. [Suspect]
     Active Substance: BAMLANIVIMAB
     Indication: COVID-19
     Dosage: ?          OTHER FREQUENCY:ONE-TIME DOSE;?
     Route: 042
     Dates: start: 20201220, end: 20201220

REACTIONS (4)
  - Infusion related reaction [None]
  - Bradycardia [None]
  - Nausea [None]
  - Pallor [None]

NARRATIVE: CASE EVENT DATE: 20201220
